FAERS Safety Report 13694919 (Version 1)
Quarter: 2017Q2

REPORT INFORMATION
  Report Type: Spontaneous
  Country: US (occurrence: US)
  Receive Date: 20170627
  Receipt Date: 20170627
  Transmission Date: 20170830
  Serious: Yes (Hospitalization)
  Sender: FDA-Public Use
  Company Number: US-FRESENIUS MEDICAL CARE RENAL THERAPIES GROUP-FMC-1706-000666

PATIENT
  Age: 71 Year
  Sex: Male

DRUGS (11)
  1. CINACALCET [Concomitant]
     Active Substance: CINACALCET
  2. DELFLEX [Suspect]
     Active Substance: CALCIUM CHLORIDE\DEXTROSE\MAGNESIUM CHLORIDE\SODIUM CHLORIDE\SODIUM LACTATE
     Indication: END STAGE RENAL DISEASE
     Route: 033
  3. GABAPENTIN. [Concomitant]
     Active Substance: GABAPENTIN
  4. CALCIUM ACETATE. [Concomitant]
     Active Substance: CALCIUM ACETATE
  5. ASPIRIN. [Concomitant]
     Active Substance: ASPIRIN
  6. ALBUTEROL. [Concomitant]
     Active Substance: ALBUTEROL
  7. LEVOTHYROXINE. [Concomitant]
     Active Substance: LEVOTHYROXINE
  8. NOVOLOG [Concomitant]
     Active Substance: INSULIN ASPART
  9. DULERA [Concomitant]
     Active Substance: FORMOTEROL FUMARATE DIHYDRATE\MOMETASONE FUROATE
  10. EZETIMIBE. [Concomitant]
     Active Substance: EZETIMIBE
  11. ATORVASTATIN [Concomitant]
     Active Substance: ATORVASTATIN

REACTIONS (1)
  - Hypotension [Recovered/Resolved]

NARRATIVE: CASE EVENT DATE: 20170613
